FAERS Safety Report 4570134-X (Version None)
Quarter: 2005Q1

REPORT INFORMATION
  Report Type: 
  Country: None (occurrence: None)
  Receive Date: 20050131
  Receipt Date: 20050114
  Transmission Date: 20050727
  Serious: Yes (Death, Life-Threatening, Hospitalization, Other)
  Sender: FDA-Public Use
  Company Number: 2005013749

PATIENT
  Age: 50 Year
  Sex: Female
  Weight: 78 kg

DRUGS (11)
  1. FLUCONAZOLE [Suspect]
     Indication: ANTIFUNGAL PROPHYLAXIS
     Dosage: 400 MG (1 IN 1 D), ORAL
     Route: 048
     Dates: start: 20020413, end: 20020424
  2. TEMAZEPAM [Concomitant]
  3. TRIAMCINOLONE [Concomitant]
  4. BACTRIM [Concomitant]
  5. URSODEOXYCHOLIC ACID (URSODEOXYCHOLIC ACID) [Concomitant]
  6. RANITIDINE [Concomitant]
  7. CYCLOSPORINE [Concomitant]
  8. PREDNISONE [Concomitant]
  9. METHYLPREDNISOLONE [Concomitant]
  10. CLOTRIMAZOLE (CLOTRIMAZOLE) [Concomitant]
  11. AMPHOTERICIN B [Concomitant]

REACTIONS (37)
  - ABDOMINAL PAIN [None]
  - ASTHENIA [None]
  - ATRIAL FIBRILLATION [None]
  - CATHETER RELATED COMPLICATION [None]
  - COAGULOPATHY [None]
  - CYTOMEGALOVIRUS INFECTION [None]
  - DEHYDRATION [None]
  - DEPRESSION [None]
  - DIALYSIS [None]
  - DIARRHOEA [None]
  - DIZZINESS [None]
  - DYSPHONIA [None]
  - DYSPNOEA [None]
  - ENTEROCOCCAL INFECTION [None]
  - EUTHYROID SICK SYNDROME [None]
  - FATIGUE [None]
  - GRAFT VERSUS HOST DISEASE [None]
  - HAEMORRHAGE [None]
  - HYPERTENSION [None]
  - HYPOALBUMINAEMIA [None]
  - HYPOMAGNESAEMIA [None]
  - HYPONATRAEMIA [None]
  - INAPPROPRIATE ANTIDIURETIC HORMONE SECRETION [None]
  - LEUKOENCEPHALOPATHY [None]
  - LEUKOPENIA [None]
  - MALIGNANT NEOPLASM PROGRESSION [None]
  - MUCOSAL INFLAMMATION [None]
  - NAUSEA [None]
  - NON-HODGKIN'S LYMPHOMA [None]
  - OEDEMA PERIPHERAL [None]
  - ORAL INTAKE REDUCED [None]
  - POST PROCEDURAL HAEMORRHAGE [None]
  - RASH [None]
  - SEPSIS [None]
  - THROMBOCYTOPENIA [None]
  - VOMITING [None]
  - WEIGHT DECREASED [None]
